FAERS Safety Report 20802622 (Version 1)
Quarter: 2022Q2

REPORT INFORMATION
  Report Type: Spontaneous
  Country: US (occurrence: None)
  Receive Date: 20220509
  Receipt Date: 20220509
  Transmission Date: 20220721
  Serious: Yes (Life-Threatening, Hospitalization)
  Sender: FDA-Public Use
  Company Number: None

PATIENT
  Age: 57 Year
  Sex: Female
  Weight: 114 kg

DRUGS (2)
  1. ISOVUE [Suspect]
     Active Substance: IOPAMIDOL
     Indication: Computerised tomogram
     Dosage: OTHER FREQUENCY : ONCE;?
     Route: 040
     Dates: start: 20220422, end: 20220422
  2. ISOVUE [Suspect]
     Active Substance: IOPAMIDOL
     Indication: Neoplasm malignant

REACTIONS (5)
  - Feeling abnormal [None]
  - Pallor [None]
  - Cyanosis [None]
  - Loss of consciousness [None]
  - Pulse absent [None]

NARRATIVE: CASE EVENT DATE: 20220422
